FAERS Safety Report 10436497 (Version 1)
Quarter: 2014Q3

REPORT INFORMATION
  Report Type: Spontaneous
  Country: US (occurrence: US)
  Receive Date: 20140908
  Receipt Date: 20140908
  Transmission Date: 20150326
  Serious: No
  Sender: FDA-Public Use
  Company Number: US-BRISTOL-MYERS SQUIBB COMPANY-19500727

PATIENT
  Age: 50 Year
  Sex: Female

DRUGS (2)
  1. PRISTIQ EXTENDED RELEASE [Concomitant]
     Active Substance: DESVENLAFAXINE SUCCINATE
  2. ABILIFY [Suspect]
     Active Substance: ARIPIPRAZOLE
     Indication: DEPRESSIVE SYMPTOM
     Dosage: STARTED IN  JULY

REACTIONS (5)
  - Abdominal distension [Unknown]
  - Muscle spasms [Unknown]
  - Breast pain [Recovered/Resolved]
  - Restlessness [Unknown]
  - Constipation [Unknown]
